FAERS Safety Report 7565875-6 (Version None)
Quarter: 2011Q2

REPORT INFORMATION
  Report Type: 
  Country: None (occurrence: None)
  Receive Date: 20110623
  Receipt Date: 20110618
  Transmission Date: 20111010
  Serious: Yes (Other)
  Sender: FDA-Public Use
  Company Number: US-PFIZER INC-2011134306

PATIENT
  Sex: Male
  Weight: 97.506 kg

DRUGS (8)
  1. LYRICA [Suspect]
     Indication: NEURALGIA
     Dosage: 75 MG, DAILY
     Route: 048
     Dates: start: 20110601, end: 20110617
  2. ACETYLSALICYLIC ACID [Concomitant]
     Indication: ANTICOAGULANT THERAPY
     Dosage: 325 MG, DAILY
     Route: 048
  3. AZELASTINE HYDROCHLORIDE [Concomitant]
     Indication: ALLERGIC SINUSITIS
     Dosage: ONE SQUIRT TWO TIMES A DAY
     Route: 045
  4. FLONASE [Concomitant]
     Indication: ALLERGIC SINUSITIS
     Dosage: ONE SQUIRT TWO TIMES A DAY
     Route: 045
  5. DOCUSATE SODIUM/SENNOSIDE A+B [Concomitant]
     Dosage: UNK
  6. LYRICA [Suspect]
     Indication: SLEEP DISORDER
  7. VERAPAMIL [Concomitant]
     Indication: HYPERTENSION
     Dosage: 180 MG, DAILY
     Route: 048
  8. PRAVASTATIN [Concomitant]
     Indication: BLOOD CHOLESTEROL ABNORMAL
     Dosage: 40 MG, DAILY
     Route: 048

REACTIONS (7)
  - DYSPNOEA [None]
  - HYPERSENSITIVITY [None]
  - SWELLING FACE [None]
  - LIP SWELLING [None]
  - LOCAL SWELLING [None]
  - SWOLLEN TONGUE [None]
  - GINGIVAL SWELLING [None]
